FAERS Safety Report 5959496-6 (Version None)
Quarter: 2008Q4

REPORT INFORMATION
  Report Type: 
  Country: None (occurrence: None)
  Receive Date: 20081117
  Receipt Date: 20081031
  Transmission Date: 20090506
  Serious: Yes (Other)
  Sender: FDA-Public Use
  Company Number: 2008US003012

PATIENT
  Age: 73 Year
  Sex: Male

DRUGS (1)
  1. AMBISOME [Suspect]
     Indication: SYSTEMIC CANDIDA
     Dosage: 150 MG, UID/QD, IV
     Route: 036
     Dates: start: 20080722, end: 20080722

REACTIONS (3)
  - ARTHRALGIA [None]
  - HYPOAESTHESIA [None]
  - SENSATION OF HEAVINESS [None]
